FAERS Safety Report 13290329 (Version 2)
Quarter: 2017Q2

REPORT INFORMATION
  Report Type: Spontaneous
  Country: IN (occurrence: IN)
  Receive Date: 20170302
  Receipt Date: 20170407
  Transmission Date: 20170830
  Serious: Yes (Other)
  Sender: FDA-Public Use
  Company Number: IN-PFIZER INC-2017088452

PATIENT
  Age: 58 Year
  Sex: Female

DRUGS (2)
  1. LETROZOLE. [Concomitant]
     Active Substance: LETROZOLE
  2. PALBACE [Suspect]
     Active Substance: PALBOCICLIB
     Indication: BREAST CANCER METASTATIC
     Dosage: 125 MG, 1X/DAY
     Route: 048
     Dates: start: 20170210

REACTIONS (14)
  - Eye discharge [Unknown]
  - Pharyngitis [Unknown]
  - Alopecia [Unknown]
  - Dysentery [Unknown]
  - Hypoaesthesia [Unknown]
  - Gastric disorder [Unknown]
  - Pain [Unknown]
  - Nasal dryness [Unknown]
  - Ear discomfort [Unknown]
  - Vomiting [Unknown]
  - Asthenia [Unknown]
  - Mouth ulceration [Unknown]
  - Skin exfoliation [Unknown]
  - Pyrexia [Unknown]
